FAERS Safety Report 23009160 (Version 2)
Quarter: 2023Q4

REPORT INFORMATION
  Report Type: Spontaneous
  Country: CN (occurrence: CN)
  Receive Date: 20230929
  Receipt Date: 20231025
  Transmission Date: 20240109
  Serious: Yes (Other)
  Sender: FDA-Public Use
  Company Number: CN-HORIZON THERAPEUTICS-HZN-2023-007237

PATIENT

DRUGS (5)
  1. RAVICTI [Suspect]
     Active Substance: GLYCEROL PHENYLBUTYRATE
     Indication: Hyperammonaemia
     Dosage: 1.5 ML, TID
     Route: 048
     Dates: start: 20230626, end: 20230905
  2. RAVICTI [Suspect]
     Active Substance: GLYCEROL PHENYLBUTYRATE
     Dosage: 1.6 ML, TID
     Route: 048
     Dates: start: 2023
  3. RAVICTI [Suspect]
     Active Substance: GLYCEROL PHENYLBUTYRATE
     Dosage: 2 ML, TID
     Route: 048
     Dates: start: 2023
  4. ARGININE [Concomitant]
     Active Substance: ARGININE
     Dosage: 1.5 G, QD
     Route: 048
  5. CITRULLINE [Concomitant]
     Active Substance: CITRULLINE
     Dosage: 1.5 G, QD
     Route: 048

REACTIONS (2)
  - Liver transplant [Unknown]
  - Ammonia increased [Unknown]

NARRATIVE: CASE EVENT DATE: 20230824
